FAERS Safety Report 8161365-0 (Version None)
Quarter: 2012Q1

REPORT INFORMATION
  Report Type: 
  Country: None (occurrence: None)
  Receive Date: 20120224
  Receipt Date: 20120221
  Transmission Date: 20120608
  Serious: Yes (Death, Hospitalization)
  Sender: FDA-Public Use
  Company Number: PHHY2012CA012522

PATIENT
  Sex: Female

DRUGS (8)
  1. ASPIRIN [Concomitant]
     Dosage: 80 MG, UNK
  2. NITRO SL [Concomitant]
  3. METOPROLOL TARTRATE [Concomitant]
     Dosage: 12.5 MG, BID
     Route: 048
  4. CLOZARIL [Suspect]
     Dosage: 225 MG, (50 MG IN MORNING AND 175 MG IN EVENING)
     Route: 048
     Dates: start: 20030221, end: 20120116
  5. VITAMIN D [Concomitant]
     Dosage: 800 U, QD
     Route: 048
  6. CALCIUM [Concomitant]
     Dosage: 500 MG, BID
     Route: 048
  7. ZOPICLONE [Concomitant]
     Dosage: 5 MG, UNK
  8. ADALAT CC [Concomitant]
     Dosage: 30 MG, BID
     Route: 048

REACTIONS (1)
  - PNEUMONIA ASPIRATION [None]
